FAERS Safety Report 9197835 (Version 2)
Quarter: 2013Q1

REPORT INFORMATION
  Report Type: Spontaneous
  Country: JP (occurrence: JP)
  Receive Date: 20130328
  Receipt Date: 20130328
  Transmission Date: 20140127
  Serious: Yes (Hospitalization)
  Sender: FDA-Public Use
  Company Number: JP-NOVOPROD-366762

PATIENT
  Age: 65 Year
  Sex: Female

DRUGS (5)
  1. NOVORAPID [Suspect]
     Indication: TYPE 1 DIABETES MELLITUS
     Dosage: 30 IU, UNK
     Route: 058
  2. NOVORAPID [Suspect]
     Route: 058
  3. NOVOLIN N [Suspect]
     Indication: TYPE 1 DIABETES MELLITUS
     Dosage: 13 U, QD
     Route: 058
     Dates: start: 201210, end: 20121227
  4. NOVOLIN R [Suspect]
     Indication: TYPE 1 DIABETES MELLITUS
     Dosage: 31 IU, QD
     Route: 058
     Dates: start: 201210, end: 20121227
  5. LANTUS [Suspect]
     Indication: TYPE 1 DIABETES MELLITUS
     Dosage: 14 IU, QD
     Route: 058

REACTIONS (3)
  - Pruritus generalised [Recovering/Resolving]
  - Feeling abnormal [Recovering/Resolving]
  - Diabetes mellitus inadequate control [Recovering/Resolving]
